FAERS Safety Report 12094673 (Version 1)
Quarter: 2016Q1

REPORT INFORMATION
  Report Type: Spontaneous
  Country: BR (occurrence: BR)
  Receive Date: 20160219
  Receipt Date: 20160219
  Transmission Date: 20160526
  Serious: Yes (Other)
  Sender: FDA-Public Use
  Company Number: BR-SA-2016SA031760

PATIENT
  Age: 88 Year
  Sex: Male

DRUGS (1)
  1. LANTUS [Suspect]
     Active Substance: INSULIN GLARGINE
     Dosage: DOSE: 40 U IN MORNING AND 22 U AT NIGHT
     Route: 065
     Dates: start: 2006

REACTIONS (5)
  - Bone lesion [Unknown]
  - Bedridden [Unknown]
  - Drug administration error [Unknown]
  - Blindness [Unknown]
  - Wound [Unknown]

NARRATIVE: CASE EVENT DATE: 2006
